FAERS Safety Report 20912241 (Version 1)
Quarter: 2022Q2

REPORT INFORMATION
  Report Type: Report from Study
  Country: DE (occurrence: DE)
  Receive Date: 20220603
  Receipt Date: 20220603
  Transmission Date: 20220721
  Serious: Yes (Hospitalization)
  Sender: FDA-Public Use
  Company Number: DE-NOVARTISPH-NVSC2022DE122920

PATIENT
  Age: 63 Year
  Sex: Male
  Weight: 86 kg

DRUGS (8)
  1. INCLISIRAN [Suspect]
     Active Substance: INCLISIRAN
     Indication: Arteriosclerosis
     Dosage: UNK
     Route: 058
     Dates: start: 20180117
  2. INCLISIRAN [Suspect]
     Active Substance: INCLISIRAN
     Indication: Arteriosclerosis
     Dosage: UNK
     Route: 058
     Dates: start: 20190708
  3. INCLISIRAN [Suspect]
     Active Substance: INCLISIRAN
     Dosage: UNK
     Route: 058
     Dates: start: 20190910
  4. INCLISIRAN [Suspect]
     Active Substance: INCLISIRAN
     Dosage: UNK
     Route: 058
     Dates: start: 20200316
  5. INCLISIRAN [Suspect]
     Active Substance: INCLISIRAN
     Dosage: UNK
     Route: 058
     Dates: start: 20200921
  6. INCLISIRAN [Suspect]
     Active Substance: INCLISIRAN
     Dosage: UNK
     Route: 058
     Dates: start: 20210301
  7. INCLISIRAN [Suspect]
     Active Substance: INCLISIRAN
     Dosage: UNK
     Route: 058
     Dates: start: 20210920
  8. INCLISIRAN [Suspect]
     Active Substance: INCLISIRAN
     Dosage: UNK
     Route: 058
     Dates: start: 20220221

REACTIONS (1)
  - Cerebrovascular disorder [Not Recovered/Not Resolved]

NARRATIVE: CASE EVENT DATE: 20220524
